FAERS Safety Report 16005431 (Version 1)
Quarter: 2019Q1

REPORT INFORMATION
  Report Type: Spontaneous
  Country: US (occurrence: US)
  Receive Date: 20190226
  Receipt Date: 20190226
  Transmission Date: 20190418
  Serious: Yes (Other)
  Sender: FDA-Public Use
  Company Number: None

PATIENT
  Age: 66 Year
  Sex: Male
  Weight: 96.75 kg

DRUGS (3)
  1. ASPIRIN-81 [Concomitant]
  2. GLEEVEC [Suspect]
     Active Substance: IMATINIB MESYLATE
     Indication: MYELOID LEUKAEMIA
     Route: 048
     Dates: start: 20190129
  3. MULTI COMPLETE [Concomitant]

REACTIONS (1)
  - Pneumonia [None]
